FAERS Safety Report 12216228 (Version 3)
Quarter: 2016Q2

REPORT INFORMATION
  Report Type: Spontaneous
  Country: US (occurrence: US)
  Receive Date: 20160329
  Receipt Date: 20160530
  Transmission Date: 20160815
  Serious: Yes (Other)
  Sender: FDA-Public Use
  Company Number: US-PFIZER INC-2016166297

PATIENT
  Age: 85 Year
  Sex: Female
  Weight: 72 kg

DRUGS (2)
  1. XALATAN [Suspect]
     Active Substance: LATANOPROST
     Dosage: UNK
     Dates: end: 201512
  2. XALATAN [Suspect]
     Active Substance: LATANOPROST
     Indication: GLAUCOMA
     Dosage: 1 DF IN EACH EYE, 1X/DAY EVERY NIGHT

REACTIONS (4)
  - Cough [Unknown]
  - Dysphonia [Not Recovered/Not Resolved]
  - Viral infection [Unknown]
  - Bronchitis [Unknown]

NARRATIVE: CASE EVENT DATE: 20160226
